FAERS Safety Report 25132562 (Version 1)
Quarter: 2025Q1

REPORT INFORMATION
  Report Type: Spontaneous
  Country: DE (occurrence: DE)
  Receive Date: 20250328
  Receipt Date: 20250328
  Transmission Date: 20250409
  Serious: Yes (Other)
  Sender: BRISTOL-MYERS SQUIBB COMPANY
  Company Number: DE-ABBVIE-6173737

PATIENT
  Age: 57 Year
  Sex: Male

DRUGS (2)
  1. AZACITIDINE [Suspect]
     Active Substance: AZACITIDINE
     Indication: Precursor T-lymphoblastic lymphoma/leukaemia
  2. VENETOCLAX [Suspect]
     Active Substance: VENETOCLAX
     Indication: Precursor T-lymphoblastic lymphoma/leukaemia
     Route: 048

REACTIONS (6)
  - Bone marrow failure [Unknown]
  - Erythroid dysplasia [Unknown]
  - Bone marrow disorder [Unknown]
  - Shift to the left [Unknown]
  - Megakaryocytes decreased [Unknown]
  - Off label use [Unknown]
